FAERS Safety Report 16262409 (Version 1)
Quarter: 2019Q2

REPORT INFORMATION
  Report Type: Spontaneous
  Country: CN (occurrence: CN)
  Receive Date: 20190501
  Receipt Date: 20190501
  Transmission Date: 20190711
  Serious: Yes (Other)
  Sender: FDA-Public Use
  Company Number: CN-BAXTER-2019BAX008512

PATIENT
  Age: 36 Year
  Sex: Female
  Weight: 60 kg

DRUGS (12)
  1. 0.9% SODIUM CHLORIDE INJECTION [Suspect]
     Active Substance: SODIUM CHLORIDE
     Dosage: CYCLOPHOSPHAMIDE FOR INJECTION (ENDOXAN) + NS, DOSE RE-INTRODUCED
     Route: 041
  2. PHARMORUBICIN RD [Suspect]
     Active Substance: EPIRUBICIN
     Dosage: 3RD CHEMOTHERAPY, EPIRUBICIN HYDROCHLORIDE FOR INJECTION (PHARMORUBICIN RD) 138 MG + NS 100 ML
     Route: 041
     Dates: start: 20190221, end: 20190221
  3. ENDOXAN [Suspect]
     Active Substance: CYCLOPHOSPHAMIDE
     Dosage: DOSAGE FORM: INJECTION, CYCLOPHOSPHAMIDE FOR INJECTION (ENDOXAN) + NS, DOSE RE-INTRODUCED
     Route: 041
  4. 0.9% SODIUM CHLORIDE INJECTION [Suspect]
     Active Substance: SODIUM CHLORIDE
     Indication: MEDICATION DILUTION
     Dosage: 1ST AND 2ND CHEMOTHERAPY, CYCLOPHOSPHAMIDE FOR INJECTION (ENDOXAN) + NS
     Route: 041
  5. ENDOXAN [Suspect]
     Active Substance: CYCLOPHOSPHAMIDE
     Dosage: DOSAGE FORM: INJECTION, 3RD CHEMOTHERAPY, CYCLOPHOSPHAMIDE FOR INJECTION (ENDOXAN) 1000 MG + NS 50 M
     Route: 041
     Dates: start: 20190221, end: 20190221
  6. 0.9% SODIUM CHLORIDE INJECTION [Suspect]
     Active Substance: SODIUM CHLORIDE
     Dosage: 3RD CHEMOTHERAPY, CYCLOPHOSPHAMIDE FOR INJECTION (ENDOXAN) 1000 MG + NS 50 ML
     Route: 041
     Dates: start: 20190221, end: 20190221
  7. 0.9% SODIUM CHLORIDE INJECTION [Suspect]
     Active Substance: SODIUM CHLORIDE
     Dosage: 1ST AND 2ND CHEMOTHERAPY, EPIRUBICIN HYDROCHLORIDE FOR INJECTION (PHARMORUBICIN RD) + NS
     Route: 041
  8. PHARMORUBICIN RD [Suspect]
     Active Substance: EPIRUBICIN
     Dosage: EPIRUBICIN HYDROCHLORIDE FOR INJECTION (PHARMORUBICIN RD) + NS, DOSE RE-INTRODUCED
     Route: 041
  9. ENDOXAN [Suspect]
     Active Substance: CYCLOPHOSPHAMIDE
     Indication: BREAST CANCER FEMALE
     Dosage: DOSAGE FORM: INJECTION, 1ST AND 2ND CHEMOTHERAPY, CYCLOPHOSPHAMIDE FOR INJECTION (ENDOXAN) + NS
     Route: 041
  10. 0.9% SODIUM CHLORIDE INJECTION [Suspect]
     Active Substance: SODIUM CHLORIDE
     Dosage: EPIRUBICIN HYDROCHLORIDE FOR INJECTION (PHARMORUBICIN RD) + NS, DOSE RE-INTRODUCED
     Route: 041
  11. 0.9% SODIUM CHLORIDE INJECTION [Suspect]
     Active Substance: SODIUM CHLORIDE
     Dosage: 3RD CHEMOTHERAPY, EPIRUBICIN HYDROCHLORIDE FOR INJECTION (PHARMORUBICIN RD) 138 MG + NS 100 ML
     Route: 041
     Dates: start: 20190221, end: 20190221
  12. PHARMORUBICIN RD [Suspect]
     Active Substance: EPIRUBICIN
     Indication: BREAST CANCER FEMALE
     Dosage: 1ST AND 2ND CHEMOTHERAPY, EPIRUBICIN HYDROCHLORIDE FOR INJECTION (PHARMORUBICIN RD) + NS
     Route: 041

REACTIONS (1)
  - Agranulocytosis [Recovered/Resolved]

NARRATIVE: CASE EVENT DATE: 20190304
